FAERS Safety Report 7054332-1 (Version None)
Quarter: 2010Q4

REPORT INFORMATION
  Report Type: 
  Country: None (occurrence: None)
  Receive Date: 20101020
  Receipt Date: 20101008
  Transmission Date: 20110411
  Serious: Yes (Other)
  Sender: FDA-Public Use
  Company Number: US-PFIZER INC-2010111278

PATIENT
  Sex: Female
  Weight: 81 kg

DRUGS (3)
  1. AROMASIN [Suspect]
     Indication: BREAST CANCER
     Dosage: 25 MG, 1X/DAY
     Route: 048
     Dates: start: 20060201, end: 20100901
  2. NEVANAC [Suspect]
     Indication: CATARACT
     Dosage: UNK
     Dates: start: 20100801
  3. LEVOTHYROXINE [Concomitant]
     Dosage: UNK

REACTIONS (4)
  - CATARACT [None]
  - CONDITION AGGRAVATED [None]
  - INTRAOCULAR PRESSURE FLUCTUATION [None]
  - PLATELET COUNT DECREASED [None]
